FAERS Safety Report 4424790-7 (Version None)
Quarter: 2004Q3

REPORT INFORMATION
  Report Type: 
  Country: None (occurrence: None)
  Receive Date: 20040809
  Receipt Date: 20040726
  Transmission Date: 20050211
  Serious: Yes (Disabling)
  Sender: FDA-Public Use
  Company Number: GB-JNJFOC-20040707231

PATIENT
  Sex: Male
  Weight: 70 kg

DRUGS (5)
  1. GALANTAMINE            (GALANTAMINE) [Suspect]
     Indication: MEMORY IMPAIRMENT
     Dosage: 4 MG, IN 1 DAY, ORAL
     Route: 048
     Dates: start: 20040622, end: 20040626
  2. BUSPIRONE [Concomitant]
  3. MIRTAZAPINE [Concomitant]
  4. RISPERDAL [Concomitant]
  5. CITALOPRAM [Concomitant]

REACTIONS (9)
  - ABASIA [None]
  - ACTIVITIES OF DAILY LIVING IMPAIRED [None]
  - ANXIETY [None]
  - ASTHENIA [None]
  - CONFUSIONAL STATE [None]
  - DIZZINESS [None]
  - MOBILITY DECREASED [None]
  - NERVOUSNESS [None]
  - RESTLESSNESS [None]
